FAERS Safety Report 4577081-8 (Version None)
Quarter: 2005Q1

REPORT INFORMATION
  Report Type: 
  Country: None (occurrence: None)
  Receive Date: 20050208
  Receipt Date: 20050127
  Transmission Date: 20050727
  Serious: Yes (Hospitalization)
  Sender: FDA-Public Use
  Company Number: 2005021137

PATIENT
  Age: 18 Year
  Sex: Male
  Weight: 77.1115 kg

DRUGS (2)
  1. DRAMAMINE [Suspect]
     Indication: EUPHORIC MOOD
     Dosage: 23 TABLETS AT ONCE, ORAL
     Route: 048
     Dates: start: 20050125, end: 20050125
  2. CORICIDIN [Suspect]
     Indication: EUPHORIC MOOD
     Dosage: ONCE
     Dates: start: 20050125, end: 20050125

REACTIONS (2)
  - DEPRESSION [None]
  - INTENTIONAL MISUSE [None]
